FAERS Safety Report 5432876-3 (Version None)
Quarter: 2007Q3

REPORT INFORMATION
  Report Type: 
  Country: None (occurrence: None)
  Receive Date: 20070831
  Receipt Date: 20070712
  Transmission Date: 20080115
  Serious: No
  Sender: FDA-Public Use
  Company Number: A0663170A

PATIENT
  Age: 76 Year
  Sex: Male

DRUGS (1)
  1. ALLI [Suspect]
     Indication: WEIGHT LOSS DIET
     Dosage: 4CAP PER DAY
     Route: 048
     Dates: start: 20070622, end: 20070629

REACTIONS (7)
  - ABDOMINAL PAIN UPPER [None]
  - FLATULENCE [None]
  - GASTROINTESTINAL PAIN [None]
  - INSOMNIA [None]
  - MALAISE [None]
  - MUSCLE SPASMS [None]
  - RECTAL DISCHARGE [None]
